FAERS Safety Report 7597273-3 (Version None)
Quarter: 2011Q3

REPORT INFORMATION
  Report Type: 
  Country: None (occurrence: None)
  Receive Date: 20110708
  Receipt Date: 20110203
  Transmission Date: 20111222
  Serious: No
  Sender: FDA-Public Use
  Company Number: US-GLAXOSMITHKLINE-A0911695A

PATIENT
  Age: 57 Year
  Sex: Male

DRUGS (6)
  1. SEREVENT [Concomitant]
  2. CYMBALTA [Concomitant]
  3. FLOVENT [Suspect]
     Indication: ASTHMA
     Dosage: 2PUFF TWICE PER DAY
     Route: 055
     Dates: start: 20080101
  4. REQUIP [Concomitant]
  5. METFORMIN HCL [Concomitant]
  6. LIPITOR [Concomitant]

REACTIONS (3)
  - PRODUCT QUALITY ISSUE [None]
  - WHEEZING [None]
  - OVERDOSE [None]
